FAERS Safety Report 25157746 (Version 1)
Quarter: 2025Q2

REPORT INFORMATION
  Report Type: Spontaneous
  Country: MX (occurrence: MX)
  Receive Date: 20250403
  Receipt Date: 20250403
  Transmission Date: 20250716
  Serious: Yes (Other)
  Sender: JOHNSON AND JOHNSON
  Company Number: MX-BAYER-2025A032870

PATIENT
  Sex: Female
  Weight: 46.998 kg

DRUGS (2)
  1. XARELTO [Suspect]
     Active Substance: RIVAROXABAN
     Indication: Product used for unknown indication
     Dosage: 10 MG, QD
     Route: 048
     Dates: start: 202503
  2. XARELTO [Suspect]
     Active Substance: RIVAROXABAN
     Route: 048
     Dates: start: 202503

REACTIONS (5)
  - Developmental hip dysplasia [Unknown]
  - Rash macular [Unknown]
  - Coagulopathy [Unknown]
  - Osteoporosis [Unknown]
  - Product prescribing issue [Unknown]
